FAERS Safety Report 10441826 (Version 1)
Quarter: 2014Q3

REPORT INFORMATION
  Report Type: Spontaneous
  Country: US (occurrence: US)
  Receive Date: 20140908
  Receipt Date: 20140908
  Transmission Date: 20150326
  Serious: No
  Sender: FDA-Public Use
  Company Number: US-ASTRAZENECA-2013SE77819

PATIENT
  Age: 69 Year
  Sex: Female
  Weight: 72.6 kg

DRUGS (9)
  1. ZESTRIL [Suspect]
     Active Substance: LISINOPRIL
     Indication: HYPERTENSION
     Dosage: 20 MG DAILY, GENERIC
     Route: 048
  2. TENORETIC [Suspect]
     Active Substance: ATENOLOL\CHLORTHALIDONE
     Indication: HYPERTENSION
     Dosage: DAILY
     Route: 048
  3. ZESTRIL [Suspect]
     Active Substance: LISINOPRIL
     Indication: HYPERTENSION
     Route: 048
     Dates: start: 1993, end: 2003
  4. ZESTRIL [Suspect]
     Active Substance: LISINOPRIL
     Indication: HYPERTENSION
     Route: 048
  5. TENORETIC [Suspect]
     Active Substance: ATENOLOL\CHLORTHALIDONE
     Indication: HYPERTENSION
     Dosage: HALF DOSE OF PRESCRIBED
     Route: 048
  6. ZESTRIL [Suspect]
     Active Substance: LISINOPRIL
     Indication: HYPERTENSION
     Dosage: 40 MG DAILY, GENERIC
     Route: 048
  7. CLONIDINE. [Concomitant]
     Active Substance: CLONIDINE
     Indication: HYPERTENSION
     Dosage: ONE HALF OF UNK MG DAILY
  8. ZESTRIL [Suspect]
     Active Substance: LISINOPRIL
     Indication: HYPERTENSION
     Dosage: 10 MG DAILY, GENERIC
     Route: 048
     Dates: start: 2003
  9. AMLODIPINE [Concomitant]
     Active Substance: AMLODIPINE BESYLATE
     Indication: HYPERTENSION
     Dosage: 5 MG. DAILY

REACTIONS (9)
  - Drug ineffective [Unknown]
  - Cough [Unknown]
  - Sluggishness [Unknown]
  - Weight decreased [Recovered/Resolved]
  - Blood pressure increased [Unknown]
  - Stress [Unknown]
  - Activities of daily living impaired [Unknown]
  - Loss of consciousness [Unknown]
  - Intentional product misuse [Unknown]

NARRATIVE: CASE EVENT DATE: 199802
